FAERS Safety Report 9859667 (Version 1)
Quarter: 2014Q1

REPORT INFORMATION
  Report Type: Spontaneous
  Country: US (occurrence: US)
  Receive Date: 20140131
  Receipt Date: 20140131
  Transmission Date: 20141002
  Serious: Yes (Hospitalization)
  Sender: FDA-Public Use
  Company Number: US-GLAXOSMITHKLINE-A1058264A

PATIENT
  Age: 65 Year
  Sex: Female

DRUGS (2)
  1. ADVAIR [Suspect]
     Indication: ASTHMA
     Dosage: 1PUFF TWICE PER DAY
     Route: 055
     Dates: start: 2002
  2. CONCURRENT MEDICATIONS [Concomitant]

REACTIONS (6)
  - Cerebrovascular accident [Not Recovered/Not Resolved]
  - Cardiac operation [Unknown]
  - Staphylococcal infection [Unknown]
  - Parkinsonism [Not Recovered/Not Resolved]
  - Bone operation [Unknown]
  - Cardiac disorder [Not Recovered/Not Resolved]
